FAERS Safety Report 18461587 (Version 1)
Quarter: 2020Q4

REPORT INFORMATION
  Report Type: Spontaneous
  Country: JP (occurrence: JP)
  Receive Date: 20201104
  Receipt Date: 20201104
  Transmission Date: 20210114
  Serious: Yes (Other)
  Sender: FDA-Public Use
  Company Number: JP-AMGEN-JPNSP2020175208

PATIENT
  Age: 62 Year
  Sex: Female

DRUGS (1)
  1. ROMOSOZUMAB [Suspect]
     Active Substance: ROMOSOZUMAB
     Indication: OSTEOPOROSIS
     Dosage: 70 MILLIGRAM
     Route: 065

REACTIONS (2)
  - Radius fracture [Unknown]
  - Off label use [Unknown]
